FAERS Safety Report 17674793 (Version 4)
Quarter: 2021Q2

REPORT INFORMATION
  Report Type: Report from Study
  Country: IT (occurrence: IT)
  Receive Date: 20200416
  Receipt Date: 20210626
  Transmission Date: 20210716
  Serious: Yes (Hospitalization)
  Sender: FDA-Public Use
  Company Number: IT-ROCHE-2161827

PATIENT
  Age: 60 Year
  Sex: Female
  Weight: 54 kg

DRUGS (29)
  1. PLASIL [Concomitant]
     Active Substance: METOCLOPRAMIDE HYDROCHLORIDE
     Dates: start: 20180702, end: 20180703
  2. PARACETAMOL [Concomitant]
     Active Substance: ACETAMINOPHEN
     Indication: PAIN
     Dates: start: 20180711
  3. RANITIDINE. [Concomitant]
     Active Substance: RANITIDINE
     Dates: start: 20180702, end: 20180707
  4. MORFINA [Concomitant]
     Active Substance: MORPHINE HYDROCHLORIDE
     Dates: start: 20180703, end: 20180703
  5. PACLITAXEL. [Suspect]
     Active Substance: PACLITAXEL
     Indication: OVARIAN CANCER
     Dosage: ON 05/JUN/2018, THE PATIENT RECEIVED THE MOST RECENT DOSE OF PACLITAXEL (287 MG) PRIOR TO ONSET OF T
     Route: 042
     Dates: start: 20180420
  6. CONTRAMAL [Concomitant]
     Active Substance: TRAMADOL HYDROCHLORIDE
     Dates: start: 20180702, end: 20180703
  7. PALEXIA [Concomitant]
     Active Substance: TAPENTADOL HYDROCHLORIDE
     Indication: PAIN
     Dates: start: 20180711
  8. KETOROLAC [Concomitant]
     Active Substance: KETOROLAC TROMETHAMINE
     Dates: start: 20180702, end: 20180710
  9. METRONIDAZOLO [Concomitant]
     Active Substance: METRONIDAZOLE
     Dates: start: 20180703, end: 20180703
  10. RINGER LATTATO [Concomitant]
     Dates: start: 20180702, end: 20180707
  11. ATEZOLIZUMAB. [Suspect]
     Active Substance: ATEZOLIZUMAB
     Indication: OVARIAN CANCER
     Dosage: ON 05/JUN/2018, THE PATIENT RECEIVED THE MOST RECENT DOSE OF ATEZOLIZUMAB 1200 MG PRIOR TO ONSET OF
     Route: 042
     Dates: start: 20180420
  12. CARBOPLATIN. [Suspect]
     Active Substance: CARBOPLATIN
     Indication: OVARIAN CANCER
     Dosage: AT A DOSE TO ACHIEVE A TARGET AREA UNDER THE CURVE (AUC) OF 6 MILLIGRAMS PER MILLILITER*MINUTE?ON 05
     Route: 042
     Dates: start: 20180420
  13. PARACETAMOL [Concomitant]
     Active Substance: ACETAMINOPHEN
     Dates: start: 20180703, end: 20180703
  14. CLEXANE [Concomitant]
     Active Substance: ENOXAPARIN SODIUM
     Indication: SURGERY
     Dates: start: 20180702, end: 20180811
  15. PROPOFOL. [Concomitant]
     Active Substance: PROPOFOL
     Dates: start: 20180702, end: 20180702
  16. FENTANEST [Concomitant]
     Active Substance: FENTANYL CITRATE
     Dates: start: 20180702, end: 20180702
  17. CEFAZOLINA [Concomitant]
     Active Substance: CEFAZOLIN SODIUM
     Dates: start: 20180702, end: 20180703
  18. FUROSEMIDE. [Concomitant]
     Active Substance: FUROSEMIDE
     Dates: start: 20180703, end: 20180703
  19. PLASIL [Concomitant]
     Active Substance: METOCLOPRAMIDE HYDROCHLORIDE
     Dates: start: 20180727, end: 20180802
  20. MENJUGATE [Concomitant]
     Active Substance: MENINGOCOCCAL POLYSACCHARIDE VACCINE C
     Dates: start: 20180703, end: 20180703
  21. BEVACIZUMAB. [Suspect]
     Active Substance: BEVACIZUMAB
     Indication: OVARIAN CANCER
     Dosage: ON 11/MAY/2018, THE PATIENT RECEIVED THE MOST RECENT DOSE OF BEVACIZUMAB (990 MG) PRIOR TO ONSET OF
     Route: 042
     Dates: start: 20180420
  22. PERFALGAN [Concomitant]
     Active Substance: ACETAMINOPHEN
     Dates: start: 20180703, end: 20180707
  23. OLIMEL [Concomitant]
     Active Substance: AMINO ACIDS\DEXTROSE\SOYBEAN OIL
     Dates: start: 20180707, end: 20180708
  24. XARENEL [Concomitant]
     Indication: OSTEOPOROSIS
     Dates: start: 20150101
  25. LANSOPRAZOLO [Concomitant]
     Active Substance: LANSOPRAZOLE
     Dates: start: 20180711, end: 20180811
  26. PNEUMOVAX 23 [Concomitant]
     Active Substance: PNEUMOCOCCAL VACCINE, POLYVALENT 23
     Dates: start: 20180705, end: 20180705
  27. CACIT (ITALY) [Concomitant]
     Indication: OSTEOPOROSIS
     Dates: start: 20150101
  28. DESAMETASONE [Concomitant]
     Active Substance: DEXAMETHASONE
     Dates: start: 20180702, end: 20180702
  29. ONDANSETRON [Concomitant]
     Active Substance: ONDANSETRON
     Dates: start: 20180702, end: 20180702

REACTIONS (1)
  - Small intestinal obstruction [Recovered/Resolved]

NARRATIVE: CASE EVENT DATE: 20180724
